FAERS Safety Report 5800269-2 (Version None)
Quarter: 2008Q3

REPORT INFORMATION
  Report Type: 
  Country: None (occurrence: None)
  Receive Date: 20080703
  Receipt Date: 20080630
  Transmission Date: 20090109
  Serious: Yes (Other)
  Sender: FDA-Public Use
  Company Number: PHHY2008NO12688

PATIENT
  Sex: Male

DRUGS (2)
  1. RITALIN [Suspect]
     Indication: ATTENTION DEFICIT/HYPERACTIVITY DISORDER
     Dosage: 20-30MG DAILY
     Route: 048
     Dates: start: 20060712, end: 20070607
  2. CONCERTA [Suspect]
     Indication: ATTENTION DEFICIT/HYPERACTIVITY DISORDER
     Dosage: 36MG/DAY
     Route: 048
     Dates: start: 20070608, end: 20080612

REACTIONS (2)
  - DECREASED APPETITE [None]
  - GROWTH RETARDATION [None]
